FAERS Safety Report 21423175 (Version 1)
Quarter: 2022Q4

REPORT INFORMATION
  Report Type: Spontaneous
  Country: CN (occurrence: CN)
  Receive Date: 20221007
  Receipt Date: 20221007
  Transmission Date: 20230113
  Serious: Yes (Other)
  Sender: FDA-Public Use
  Company Number: CN-009507513-2209CHN011373

PATIENT
  Age: 65 Year
  Sex: Male
  Weight: 43 kg

DRUGS (2)
  1. CILASTATIN SODIUM\IMIPENEM [Suspect]
     Active Substance: CILASTATIN SODIUM\IMIPENEM
     Dosage: 500 MILLIGRAM, QID
     Route: 041
     Dates: start: 20201006, end: 20201012
  2. VORICONAZOLE [Suspect]
     Active Substance: VORICONAZOLE
     Dosage: 200 MILLIGRAM, QD
     Route: 041
     Dates: start: 20201006, end: 20201006

REACTIONS (6)
  - Delirium [Recovered/Resolved]
  - Initial insomnia [Recovered/Resolved]
  - Agitation [Unknown]
  - Restlessness [Recovered/Resolved]
  - Cough [Unknown]
  - Productive cough [Recovering/Resolving]

NARRATIVE: CASE EVENT DATE: 20201012
